FAERS Safety Report 6007963-1 (Version None)
Quarter: 2008Q4

REPORT INFORMATION
  Report Type: 
  Country: None (occurrence: None)
  Receive Date: 20081217
  Receipt Date: 20080619
  Transmission Date: 20090506
  Serious: No
  Sender: FDA-Public Use
  Company Number: US-ASTRAZENECA-2008UW12355

PATIENT
  Age: 71 Year
  Sex: Female
  Weight: 84.8 kg

DRUGS (2)
  1. CRESTOR [Suspect]
     Indication: BLOOD CHOLESTEROL
     Route: 048
     Dates: start: 20080401
  2. AMLODIPINE-BENAZIPRIL [Concomitant]

REACTIONS (2)
  - BACK PAIN [None]
  - MUSCLE SPASMS [None]
